FAERS Safety Report 10012125 (Version 1)
Quarter: 2014Q1

REPORT INFORMATION
  Report Type: Spontaneous
  Country: US (occurrence: None)
  Receive Date: 20140313
  Receipt Date: 20140313
  Transmission Date: 20141002
  Serious: Yes (Death, Life-Threatening)
  Sender: FDA-Public Use
  Company Number: None

PATIENT
  Age: 67 Year
  Sex: Female
  Weight: 74.84 kg

DRUGS (6)
  1. AVELOX [Suspect]
     Indication: NASOPHARYNGITIS
     Route: 048
     Dates: start: 20130607, end: 20130607
  2. BUMEX [Concomitant]
  3. ALLEGRA-D [Concomitant]
  4. FLONASE [Concomitant]
  5. K-DUR [Concomitant]
  6. LUNESTA [Concomitant]

REACTIONS (5)
  - Swelling [None]
  - Fall [None]
  - Foaming at mouth [None]
  - Eye movement disorder [None]
  - Hypersensitivity [None]
